FAERS Safety Report 8989278 (Version 1)
Quarter: 2012Q4

REPORT INFORMATION
  Report Type: 
  Country: US (occurrence: US)
  Receive Date: 20121227
  Receipt Date: 20121227
  Transmission Date: 20130627
  Serious: No
  Sender: FDA-Public Use
  Company Number: US-009507513-1212USA009439

PATIENT
  Age: 55 Year
  Sex: Male

DRUGS (2)
  1. SYLATRON [Suspect]
     Indication: MALIGNANT MELANOMA
     Dosage: High dose of 6
  2. SYLATRON [Suspect]
     Dosage: Low dose of 3
     Route: 058

REACTIONS (3)
  - Influenza like illness [Unknown]
  - Mood altered [Unknown]
  - Fatigue [Unknown]
